FAERS Safety Report 12416194 (Version 3)
Quarter: 2016Q4

REPORT INFORMATION
  Report Type: Report from Study
  Country: US (occurrence: US)
  Receive Date: 20160530
  Receipt Date: 20161010
  Transmission Date: 20170207
  Serious: Yes (Other)
  Sender: FDA-Public Use
  Company Number: US-AMGEN-USASL2016067174

PATIENT
  Age: 62 Year
  Sex: Female
  Weight: 89.8 kg

DRUGS (2)
  1. REPATHA [Suspect]
     Active Substance: EVOLOCUMAB
     Dosage: UNK
     Route: 065
     Dates: start: 201603, end: 201605
  2. REPATHA [Suspect]
     Active Substance: EVOLOCUMAB
     Indication: DYSLIPIDAEMIA
     Dosage: 140 MG, Q2WK
     Route: 065
     Dates: start: 201512

REACTIONS (4)
  - Renal failure [Recovering/Resolving]
  - Renal atrophy [Unknown]
  - Pruritus [Unknown]
  - Vitamin D deficiency [Unknown]
